FAERS Safety Report 6347703-X (Version None)
Quarter: 2009Q3

REPORT INFORMATION
  Report Type: 
  Country: None (occurrence: None)
  Receive Date: 20090910
  Receipt Date: 20090831
  Transmission Date: 20100115
  Serious: Yes (Hospitalization)
  Sender: FDA-Public Use
  Company Number: FR-PFIZER INC-2009261569

PATIENT
  Age: 81 Year

DRUGS (13)
  1. TAHOR [Suspect]
     Indication: DYSLIPIDAEMIA
     Dosage: 10 MG, 1X/DAY
     Route: 048
     Dates: start: 20090629
  2. PREVISCAN [Suspect]
     Dosage: 75 MG, 1X/DAY
     Route: 048
     Dates: end: 20090701
  3. AMOXICILLIN AND CLAVULANATE POTASSIUM [Suspect]
     Indication: DYSLIPIDAEMIA
     Dosage: 1 G, 3X/DAY
     Route: 048
     Dates: start: 20090629
  4. LEVOTHYROXINE SODIUM [Concomitant]
  5. LASIX [Concomitant]
  6. LYRICA [Concomitant]
  7. SKENAN [Concomitant]
  8. ACTISKENAN [Concomitant]
  9. SOTALOL [Concomitant]
  10. LEXOMIL [Concomitant]
  11. RIVOTRIL [Concomitant]
  12. TAREG [Concomitant]
  13. NOVOMIX [Concomitant]

REACTIONS (1)
  - HYPOPROTHROMBINAEMIA [None]
